FAERS Safety Report 23195608 (Version 1)
Quarter: 2023Q4

REPORT INFORMATION
  Report Type: Spontaneous
  Country: HR (occurrence: HR)
  Receive Date: 20231117
  Receipt Date: 20231117
  Transmission Date: 20240110
  Serious: Yes (Hospitalization)
  Sender: FDA-Public Use
  Company Number: HR-ORGANON-O2311HRV001634

PATIENT
  Age: 31 Year
  Sex: Female

DRUGS (5)
  1. RIZATRIPTAN BENZOATE [Suspect]
     Active Substance: RIZATRIPTAN BENZOATE
     Indication: Headache
     Dosage: UNK
     Route: 048
  2. ZOLMITRIPTAN [Suspect]
     Active Substance: ZOLMITRIPTAN
     Indication: Headache
     Dosage: UNK
  3. ELETRIPTAN [Suspect]
     Active Substance: ELETRIPTAN
     Indication: Headache
     Dosage: UNK
  4. DEXKETOPROFEN [Concomitant]
     Active Substance: DEXKETOPROFEN
     Indication: Headache
     Dosage: UNK
  5. PROPRANOLOL [Concomitant]
     Active Substance: PROPRANOLOL HYDROCHLORIDE
     Indication: Prophylaxis
     Dosage: 40 MILLIGRAM, BID

REACTIONS (1)
  - Drug resistance [Unknown]
